FAERS Safety Report 17276980 (Version 1)
Quarter: 2020Q1

REPORT INFORMATION
  Report Type: Spontaneous
  Country: US (occurrence: US)
  Receive Date: 20200115
  Receipt Date: 20200115
  Transmission Date: 20200409
  Serious: Yes (Disabling)
  Sender: FDA-Public Use
  Company Number: None

PATIENT
  Age: 21 Year
  Sex: Male
  Weight: 56.25 kg

DRUGS (1)
  1. RANITIDINE. [Suspect]
     Active Substance: RANITIDINE
     Indication: BARRETT^S OESOPHAGUS
     Dosage: ?          QUANTITY:30 TABLET(S);?
     Route: 048
     Dates: start: 20190709, end: 20190719

REACTIONS (3)
  - Vomiting [None]
  - Nausea [None]
  - Abdominal pain upper [None]

NARRATIVE: CASE EVENT DATE: 20190709
